FAERS Safety Report 5241715-5 (Version None)
Quarter: 2007Q1

REPORT INFORMATION
  Report Type: 
  Country: None (occurrence: None)
  Receive Date: 20070220
  Receipt Date: 20070209
  Transmission Date: 20070707
  Serious: Yes (Other)
  Sender: FDA-Public Use
  Company Number: US-ELI_LILLY_AND_COMPANY-US200702002676

PATIENT
  Age: 64 Year
  Sex: Female

DRUGS (1)
  1. FORTEO [Suspect]
     Indication: HIP FRACTURE
     Dosage: UNK, UNK
     Dates: start: 20061101

REACTIONS (9)
  - ARTHRALGIA [None]
  - BACK PAIN [None]
  - BONE PAIN [None]
  - FEELING ABNORMAL [None]
  - HYPOTENSION [None]
  - INJECTION SITE PAIN [None]
  - NECK PAIN [None]
  - PALPITATIONS [None]
  - VISION BLURRED [None]
